FAERS Safety Report 10211220 (Version 1)
Quarter: 2014Q2

REPORT INFORMATION
  Report Type: Spontaneous
  Country: BE (occurrence: BE)
  Receive Date: 20140602
  Receipt Date: 20140602
  Transmission Date: 20141212
  Serious: Yes (Other)
  Sender: FDA-Public Use
  Company Number: BE-ACTAVIS-2014-11721

PATIENT
  Age: 58 Year
  Sex: Male

DRUGS (3)
  1. ALENDRONATE SODIUM- (UNKNOWN) [Suspect]
     Indication: OSTEOPOROSIS
     Dosage: 70 MG, 1/WEEK
     Route: 065
  2. METHYLPREDNISOLONE (UNKNOWN) [Suspect]
     Indication: ASTHMA
     Dosage: 8 MG, DAILY
     Route: 065
  3. ACLASTA [Suspect]
     Indication: OSTEOPOROSIS
     Dosage: 5 MG, DAILY
     Route: 065

REACTIONS (1)
  - Osteonecrosis of jaw [Recovered/Resolved]
